FAERS Safety Report 8427499-8 (Version None)
Quarter: 2012Q2

REPORT INFORMATION
  Report Type: 
  Country: None (occurrence: None)
  Receive Date: 20120611
  Receipt Date: 20120530
  Transmission Date: 20120825
  Serious: Yes (Other)
  Sender: FDA-Public Use
  Company Number: FR-VERTEX PHARMACEUTICALS INC.-000000000000000433

PATIENT
  Sex: Male

DRUGS (11)
  1. COPEGUS [Concomitant]
     Indication: HEPATITIS C
     Route: 046
     Dates: start: 20120109, end: 20120319
  2. NEBIVOLOL [Concomitant]
  3. ATACAND [Concomitant]
  4. PEGASYS [Concomitant]
     Indication: HEPATITIS C
     Dates: start: 20081001, end: 20090101
  5. INCIVO (TELAPREVIR) [Suspect]
     Indication: HEPATITIS C
     Dosage: DOSAGE FORM: TABLET
     Route: 048
     Dates: start: 20120109, end: 20120319
  6. COPEGUS [Concomitant]
     Indication: PRODUCT USED FOR UNKNOWN INDICATION
     Dates: start: 20081001, end: 20090101
  7. PANTOPRAZOLE [Concomitant]
  8. COTRIATEC [Concomitant]
  9. ATORVASTATIN [Concomitant]
  10. PEGASYS [Concomitant]
     Route: 058
     Dates: start: 20120109, end: 20120319
  11. ASPIRIN [Concomitant]

REACTIONS (4)
  - AFFECTIVE DISORDER [None]
  - NAUSEA [None]
  - FATIGUE [None]
  - ANAEMIA [None]
